FAERS Safety Report 16336303 (Version 7)
Quarter: 2022Q1

REPORT INFORMATION
  Report Type: Report from Study
  Country: IT (occurrence: IT)
  Receive Date: 20190521
  Receipt Date: 20220203
  Transmission Date: 20220423
  Serious: Yes (Other)
  Sender: FDA-Public Use
  Company Number: IT-SUN PHARMACEUTICAL INDUSTRIES LTD-2019RR-208442

PATIENT
  Age: 65 Year
  Sex: Male

DRUGS (3)
  1. IMATINIB [Suspect]
     Active Substance: IMATINIB
     Indication: Gastrointestinal stromal tumour
     Dosage: 400 MILLIGRAM, DAILY
     Route: 048
  2. IMATINIB [Suspect]
     Active Substance: IMATINIB
     Dosage: UNK
     Route: 065
  3. PYRIDOSTIGMINE [Suspect]
     Active Substance: PYRIDOSTIGMINE
     Indication: Myasthenic syndrome
     Dosage: 60 MILLIGRAM, QID
     Route: 065

REACTIONS (6)
  - Eyelid ptosis [Recovering/Resolving]
  - Posture abnormal [Recovering/Resolving]
  - Dysphagia [Recovering/Resolving]
  - Respiratory failure [Recovering/Resolving]
  - Myasthenic syndrome [Recovered/Resolved]
  - Drug ineffective [Unknown]
